FAERS Safety Report 4882813-5 (Version None)
Quarter: 2005Q4

REPORT INFORMATION
  Report Type: 
  Country: None (occurrence: None)
  Receive Date: 20051201
  Receipt Date: 20050915
  Transmission Date: 20060501
  Serious: No
  Sender: FDA-Public Use
  Company Number: 2005PV002324

PATIENT
  Age: 46 Year
  Sex: Male

DRUGS (1)
  1. BYETTA [Suspect]
     Dosage: SEE IMAGE
     Dates: start: 20050819

REACTIONS (1)
  - INCREASED APPETITE [None]
